FAERS Safety Report 20182203 (Version 1)
Quarter: 2021Q4

REPORT INFORMATION
  Report Type: Spontaneous
  Country: US (occurrence: US)
  Receive Date: 20211214
  Receipt Date: 20211214
  Transmission Date: 20220303
  Serious: No
  Sender: FDA-Public Use
  Company Number: US-SA-SAC20211210000373

PATIENT
  Age: 43 Year
  Sex: Female

DRUGS (2)
  1. DUPIXENT [Suspect]
     Active Substance: DUPILUMAB
     Dosage: 300 MG, QOW
     Route: 058
     Dates: start: 20210216
  2. PYRANTEL PAMOATE [Concomitant]
     Active Substance: PYRANTEL PAMOATE
     Dosage: UNK

REACTIONS (4)
  - Dehydration [Unknown]
  - Enterobiasis [Unknown]
  - Heart rate increased [Unknown]
  - Chromaturia [Unknown]
